FAERS Safety Report 14805091 (Version 1)
Quarter: 2018Q1

REPORT INFORMATION
  Report Type: Spontaneous
  Country: US (occurrence: US)
  Receive Date: 20180324
  Receipt Date: 20180324
  Transmission Date: 20180509
  Serious: Yes (Other)
  Sender: FDA-Public Use
  Company Number: None

PATIENT
  Age: 48 Year
  Sex: Female
  Weight: 73.8 kg

DRUGS (16)
  1. ZOMETA [Suspect]
     Active Substance: ZOLEDRONIC ACID
     Indication: OSTEOPOROSIS
     Dosage: IV; EVERY 6 MONTHS?
     Route: 042
     Dates: start: 20180321, end: 20180321
  2. FEMARA [Concomitant]
     Active Substance: LETROZOLE
  3. LEVOTHYROXINE. [Concomitant]
     Active Substance: LEVOTHYROXINE
  4. IBUPROFEN. [Concomitant]
     Active Substance: IBUPROFEN
  5. CLARITIN [Concomitant]
     Active Substance: LORATADINE
  6. LEVAQUIN [Concomitant]
     Active Substance: LEVOFLOXACIN
  7. TESTOSTERONE PELLET IMPLANTATION [Concomitant]
  8. TAMOXIFEN [Suspect]
     Active Substance: TAMOXIFEN
     Indication: NEOPLASM MALIGNANT
     Dates: start: 20100317, end: 20141101
  9. TAXOL [Suspect]
     Active Substance: PACLITAXEL
  10. ARIMIDEX [Suspect]
     Active Substance: ANASTROZOLE
  11. HYDROXYZINE [Concomitant]
     Active Substance: HYDROXYZINE HYDROCHLORIDE
  12. BENADRYL [Concomitant]
     Active Substance: DIPHENHYDRAMINE HYDROCHLORIDE
  13. LIOTHYRONINE [Concomitant]
     Active Substance: LIOTHYRONINE
  14. VITAMIN D3 [Concomitant]
     Active Substance: CHOLECALCIFEROL
  15. MULTIVITAMIN [Concomitant]
     Active Substance: VITAMINS
  16. TEA [Concomitant]
     Active Substance: TEA LEAF

REACTIONS (11)
  - Chills [None]
  - Pain [None]
  - Arthralgia [None]
  - Blood lactic acid increased [None]
  - Middle insomnia [None]
  - Fatigue [None]
  - Muscle fatigue [None]
  - Pyrexia [None]
  - Bone pain [None]
  - Bruxism [None]
  - Skin hyperpigmentation [None]

NARRATIVE: CASE EVENT DATE: 20180322
